FAERS Safety Report 9842277 (Version 2)
Quarter: 2014Q2

REPORT INFORMATION
  Report Type: Spontaneous
  Country: SE (occurrence: SE)
  Receive Date: 20140124
  Receipt Date: 20140401
  Transmission Date: 20141212
  Serious: Yes (Death, Other)
  Sender: FDA-Public Use
  Company Number: SE-GE HEALTHCARE MEDICAL DIAGNOSTICS-VISP-PR-1401S-0015

PATIENT
  Age: 75 Year
  Sex: Male

DRUGS (2)
  1. VISIPAQUE [Suspect]
     Indication: MYOCARDIAL INFARCTION
     Dosage: DOSE NOT REPORTED
     Route: 042
     Dates: start: 20131027, end: 20131027
  2. VISIPAQUE [Suspect]
     Indication: DIAGNOSTIC PROCEDURE

REACTIONS (1)
  - Encephalopathy [Fatal]
